FAERS Safety Report 4657621-0 (Version None)
Quarter: 2005Q2

REPORT INFORMATION
  Report Type: 
  Country: None (occurrence: None)
  Receive Date: 20050510
  Receipt Date: 20050505
  Transmission Date: 20051028
  Serious: Yes (Other)
  Sender: FDA-Public Use
  Company Number: PHBS2005CL06320

PATIENT
  Age: 14 Year

DRUGS (1)
  1. RITALIN [Suspect]
     Dosage: 10 MG, UNK

REACTIONS (1)
  - HYPERTENSIVE CRISIS [None]
